FAERS Safety Report 4861352-1 (Version None)
Quarter: 2005Q4

REPORT INFORMATION
  Report Type: 
  Country: None (occurrence: None)
  Receive Date: 20051129
  Receipt Date: 20041124
  Transmission Date: 20060501
  Serious: Yes (Disabling)
  Sender: FDA-Public Use
  Company Number: WAES 0412USA00117

PATIENT
  Age: 79 Year
  Sex: Female
  Weight: 58.0604 kg

DRUGS (4)
  1. FOSAMAX [Suspect]
     Indication: OSTEOPOROSIS
     Dosage: 70 MG WKY PO
     Route: 048
     Dates: start: 20040512, end: 20040607
  2. DIOVAN [Concomitant]
  3. NEXIUM [Concomitant]
  4. SYNTHROID [Concomitant]

REACTIONS (2)
  - HEADACHE [None]
  - NAUSEA [None]
